FAERS Safety Report 6257333-6 (Version None)
Quarter: 2009Q3

REPORT INFORMATION
  Report Type: 
  Country: None (occurrence: None)
  Receive Date: 20090706
  Receipt Date: 20090619
  Transmission Date: 20100115
  Serious: Yes (Other)
  Sender: FDA-Public Use
  Company Number: PHHO2009NZ07149

PATIENT
  Sex: Female

DRUGS (2)
  1. TASIGNA [Suspect]
     Indication: CHRONIC MYELOID LEUKAEMIA
     Dosage: 800 MG DAILY
     Route: 048
     Dates: start: 20080601, end: 20090608
  2. TASIGNA [Suspect]
     Dosage: 20 MG DAILY
     Route: 048
     Dates: end: 20090619

REACTIONS (2)
  - ELECTROCARDIOGRAM QT PROLONGED [None]
  - FEELING ABNORMAL [None]
